FAERS Safety Report 4280402-7 (Version None)
Quarter: 2004Q1

REPORT INFORMATION
  Report Type: 
  Country: None (occurrence: None)
  Receive Date: 20040126
  Receipt Date: 20040113
  Transmission Date: 20041129
  Serious: Yes (Hospitalization)
  Sender: FDA-Public Use
  Company Number: 2004193985US

PATIENT
  Age: 7 Year
  Sex: Male

DRUGS (10)
  1. GENOTROPIN [Suspect]
     Dosage: 1.1 MG , WEEKLY (INJ/WK)
  2. PREDNISOLONE [Concomitant]
  3. ZANTAC [Concomitant]
  4. SYNTHROID [Concomitant]
  5. PROZAC [Concomitant]
  6. POLY-VI-SOL (ERGOCALCIFEROL) [Concomitant]
  7. ZITHROMAX [Concomitant]
  8. PAXIL [Concomitant]
  9. PREDNISONE [Concomitant]
  10. PEDIAPRED (PREDNISOLONE SODIUM PHOSPHATE) [Concomitant]

REACTIONS (7)
  - BRADYCARDIA [None]
  - COMA [None]
  - DEVICE FAILURE [None]
  - EAR INFECTION [None]
  - LETHARGY [None]
  - MENTAL IMPAIRMENT [None]
  - VIRAL INFECTION [None]
